FAERS Safety Report 22033489 (Version 2)
Quarter: 2023Q1

REPORT INFORMATION
  Report Type: Spontaneous
  Country: US (occurrence: US)
  Receive Date: 20230224
  Receipt Date: 20230321
  Transmission Date: 20230418
  Serious: No
  Sender: FDA-Public Use
  Company Number: US-PFIZER INC-PV202300034427

PATIENT
  Age: 42 Year
  Sex: Female

DRUGS (1)
  1. XELJANZ XR [Suspect]
     Active Substance: TOFACITINIB CITRATE
     Dosage: UNK

REACTIONS (7)
  - Headache [Unknown]
  - Lethargy [Unknown]
  - Pain [Unknown]
  - Mood swings [Unknown]
  - Depressed mood [Unknown]
  - Illness [Unknown]
  - Product dose omission in error [Unknown]
